FAERS Safety Report 11806571 (Version 1)
Quarter: 2015Q4

REPORT INFORMATION
  Report Type: Spontaneous
  Country: NO (occurrence: NO)
  Receive Date: 20151207
  Receipt Date: 20151207
  Transmission Date: 20160305
  Serious: Yes (Other)
  Sender: FDA-Public Use
  Company Number: NO-GLAXOSMITHKLINE-NO2015168153

PATIENT
  Sex: Male

DRUGS (3)
  1. ERYTHROMYCIN. [Suspect]
     Active Substance: ERYTHROMYCIN
     Indication: ATYPICAL PNEUMONIA
     Dosage: 250 MG, UNK, 7 TIMES A DAY
     Route: 065
  2. SALBUTAMOL [Suspect]
     Active Substance: ALBUTEROL
     Indication: OBSTRUCTIVE AIRWAYS DISORDER
     Route: 055
  3. METOCLOPRAMIDE. [Suspect]
     Active Substance: METOCLOPRAMIDE
     Dosage: 20 MG, TID
     Route: 065

REACTIONS (5)
  - Palpitations [Unknown]
  - Electrocardiogram T wave inversion [Recovered/Resolved]
  - Dyspnoea [Unknown]
  - Tachypnoea [Unknown]
  - Tachycardia [Unknown]
